FAERS Safety Report 4315153-3 (Version None)
Quarter: 2004Q1

REPORT INFORMATION
  Report Type: 
  Country: None (occurrence: None)
  Receive Date: 20040309
  Receipt Date: 20040205
  Transmission Date: 20041129
  Serious: Yes (Hospitalization)
  Sender: FDA-Public Use
  Company Number: 205051

PATIENT
  Age: 60 Year
  Sex: Female
  Weight: 78 kg

DRUGS (9)
  1. HERCEPTIN [Suspect]
     Indication: BREAST CANCER METASTATIC
     Dosage: 345 MG, SINGLE, INTRAVENOUS : 167 MG, Q3W, INTRAVENOUS
     Route: 042
     Dates: start: 20030902, end: 20030902
  2. HERCEPTIN [Suspect]
     Indication: BREAST CANCER METASTATIC
     Dosage: 345 MG, SINGLE, INTRAVENOUS : 167 MG, Q3W, INTRAVENOUS
     Route: 042
     Dates: start: 20030909
  3. DOCETAXEL(DOCETAXEL) [Suspect]
     Indication: BREAST CANCER METASTATIC
     Dosage: 145 MG, Q3W, INTRAVENOUS
     Route: 042
     Dates: start: 20030903
  4. CARBOPLATIN [Suspect]
     Indication: BREAST CANCER METASTATIC
     Dosage: 941 MG, Q3W, INTRAVENOUS
     Route: 042
     Dates: start: 20030903
  5. WARFARIN(WARFARIN SODIUM) [Concomitant]
  6. GRANISETRON(GRANISETRON HYDROCHLORIDE) [Concomitant]
  7. DECADRON [Concomitant]
  8. EPREX [Concomitant]
  9. PROCHLORPERAZINE [Concomitant]

REACTIONS (1)
  - FEBRILE NEUTROPENIA [None]
